FAERS Safety Report 7549004-0 (Version None)
Quarter: 2011Q2

REPORT INFORMATION
  Report Type: 
  Country: None (occurrence: None)
  Receive Date: 20110615
  Receipt Date: 20110606
  Transmission Date: 20111010
  Serious: Yes (Congenital Anomaly)
  Sender: FDA-Public Use
  Company Number: GB-ROCHE-781110

PATIENT
  Sex: Male

DRUGS (2)
  1. ACCUTANE [Suspect]
     Indication: ACNE
  2. DIANETTE [Concomitant]
     Indication: ACNE

REACTIONS (2)
  - ANOMALY OF EXTERNAL EAR CONGENITAL [None]
  - DEAFNESS [None]
